FAERS Safety Report 5855675-7 (Version None)
Quarter: 2008Q3

REPORT INFORMATION
  Report Type: 
  Country: None (occurrence: None)
  Receive Date: 20080823
  Receipt Date: 20080816
  Transmission Date: 20090109
  Serious: Yes (Other)
  Sender: FDA-Public Use
  Company Number: US-ELI_LILLY_AND_COMPANY-US200808003255

PATIENT
  Sex: Male

DRUGS (12)
  1. BYETTA [Suspect]
     Indication: TYPE 2 DIABETES MELLITUS
     Dosage: 10 UG, 2/D
     Route: 058
  2. METFORMIN [Concomitant]
     Dosage: UNK, UNKNOWN
  3. PLAVIX [Concomitant]
     Dosage: UNK, UNKNOWN
  4. AVAPRO [Concomitant]
     Dosage: UNK, UNKNOWN
  5. FLOMAX [Concomitant]
     Dosage: UNK, UNKNOWN
  6. GLYBURIDE [Concomitant]
     Dosage: UNK, UNKNOWN
  7. LIPITOR [Concomitant]
     Dosage: UNK, UNKNOWN
  8. AMBIEN [Concomitant]
     Dosage: UNK, UNKNOWN
  9. LEVITRA [Concomitant]
     Dosage: UNK, UNKNOWN
  10. ACTOS [Concomitant]
     Dosage: UNK, UNKNOWN
  11. AMPHETAMINE AND DEXTROAMPHETAMINE SALTS [Concomitant]
     Dosage: 20 MG, UNKNOWN
  12. DIFLUCAN [Concomitant]
     Dosage: UNK, UNKNOWN

REACTIONS (2)
  - CEREBROVASCULAR ACCIDENT [None]
  - INCORRECT DOSE ADMINISTERED [None]
